FAERS Safety Report 13106659 (Version 1)
Quarter: 2017Q1

REPORT INFORMATION
  Report Type: Spontaneous
  Country: US (occurrence: US)
  Receive Date: 20170111
  Receipt Date: 20170111
  Transmission Date: 20170428
  Serious: Yes (Death)
  Sender: FDA-Public Use
  Company Number: US-PERRIGO-17US000390

PATIENT
  Age: 44 Year
  Sex: Female

DRUGS (6)
  1. HYDROMORPHONE HYDROCHLORIDE. [Suspect]
     Active Substance: HYDROMORPHONE HYDROCHLORIDE
     Indication: COMPLETED SUICIDE
     Route: 050
  2. HYDROCODONE [Suspect]
     Active Substance: HYDROCODONE
     Indication: COMPLETED SUICIDE
     Route: 050
  3. FLUOXETINE [Suspect]
     Active Substance: FLUOXETINE HYDROCHLORIDE
     Indication: COMPLETED SUICIDE
     Route: 050
  4. ALPRAZOLAM. [Suspect]
     Active Substance: ALPRAZOLAM
     Indication: COMPLETED SUICIDE
     Route: 050
  5. MARIJUANA [Suspect]
     Active Substance: CANNABIS SATIVA SUBSP. INDICA TOP
     Indication: COMPLETED SUICIDE
     Route: 050
  6. DIAZEPAM. [Suspect]
     Active Substance: DIAZEPAM
     Indication: COMPLETED SUICIDE
     Route: 050

REACTIONS (1)
  - Death [Fatal]
